FAERS Safety Report 11999231 (Version 1)
Quarter: 2016Q1

REPORT INFORMATION
  Report Type: Spontaneous
  Country: GB (occurrence: GB)
  Receive Date: 20160204
  Receipt Date: 20160204
  Transmission Date: 20160526
  Serious: Yes (Hospitalization, Other)
  Sender: FDA-Public Use
  Company Number: GB-HOSPIRA-3154852

PATIENT
  Age: 77 Year
  Sex: Male

DRUGS (16)
  1. MABTHERA [Suspect]
     Active Substance: RITUXIMAB
     Indication: DIFFUSE LARGE B-CELL LYMPHOMA
     Dosage: CUMULATIVE DOSE: 60510 MG, LAST DOSE PRIOR TO SAE 05/NOV/2015 AT 2 MG DAILY
     Route: 042
     Dates: start: 20150820
  2. LEFLUNOMIDE. [Concomitant]
     Active Substance: LEFLUNOMIDE
     Indication: RHEUMATOID ARTHRITIS
     Dosage: LAST DOSE 11/NOV/2015
     Route: 048
     Dates: start: 201107
  3. VINCRISTINE SULFATE. [Suspect]
     Active Substance: VINCRISTINE SULFATE
     Indication: DIFFUSE LARGE B-CELL LYMPHOMA
     Dosage: CUMULATIVE DOSE: 168.0833 MG
     Route: 042
     Dates: start: 20150820
  4. PREDNISOLONE. [Suspect]
     Active Substance: PREDNISOLONE
     Indication: DIFFUSE LARGE B-CELL LYMPHOMA
     Dosage: CUMULATIVE DOSE:  8904.166 MG, LAST DOSE PRIOR TO SAW ON 09/NOV/2015
     Route: 048
     Dates: start: 20150815
  5. CYCLOPHOSPHAMIDE. [Suspect]
     Active Substance: CYCLOPHOSPHAMIDE
     Indication: DIFFUSE LARGE B-CELL LYMPHOMA
     Dosage: CUMULATIVE DOSE: 117658.33 MG, LAST DOSE PRIOR O SAE 05/NOV/2015
     Route: 042
     Dates: start: 20150820
  6. FUROSEMIDE. [Concomitant]
     Active Substance: FUROSEMIDE
     Indication: CARDIAC FAILURE
     Dosage: LAST DOSE 12/NOV/2015
     Route: 048
  7. CHLORPHENIRAMINE                   /00072501/ [Concomitant]
     Active Substance: CHLORPHENIRAMINE
     Indication: PRODUCT USED FOR UNKNOWN INDICATION
     Dosage: STAT DOSE, LAST DOSE PRIOR TO SAE 05/NOV/2015
     Route: 042
     Dates: start: 20150815
  8. INOTUZUMAB OZOGAMICIN [Suspect]
     Active Substance: INOTUZUMAB OZOGAMICIN
     Indication: DIFFUSE LARGE B-CELL LYMPHOMA
     Dosage: 0.016 MG, STAT DOSE; CUMULATIVE DOSE: 1.32866 MG
     Route: 042
     Dates: start: 20150821, end: 20150918
  9. FUROSEMIDE. [Concomitant]
     Active Substance: FUROSEMIDE
     Indication: CARDIAC FAILURE
     Route: 065
  10. FLUCONAZOLE. [Concomitant]
     Active Substance: FLUCONAZOLE
     Indication: PRODUCT USED FOR UNKNOWN INDICATION
     Route: 065
     Dates: start: 20150815
  11. ALLOPURINOL. [Concomitant]
     Active Substance: ALLOPURINOL
     Indication: PROPHYLAXIS
     Dosage: LAST DOSE PRIOR TO SAE 11/NOV/2015
     Route: 048
     Dates: start: 20150815
  12. DIGOXIN. [Concomitant]
     Active Substance: DIGOXIN
     Indication: ATRIAL FIBRILLATION
     Dosage: LAST DOSE 11/NOV/2015
     Route: 048
  13. FILGRASTINE [Concomitant]
     Indication: PRODUCT USED FOR UNKNOWN INDICATION
     Dosage: CUMULATIVE DOSE: 24312.5 MCG, LAST DOSE PRIOR TO SAE 11/NOV/2015
     Route: 058
     Dates: start: 20150823
  14. METOCLOPRAMIDE. [Concomitant]
     Active Substance: METOCLOPRAMIDE
     Indication: PROPHYLAXIS
     Dosage: 10-20 MG AS NEEDED
     Route: 048
     Dates: start: 20150820
  15. OMEPRAZOLE. [Concomitant]
     Active Substance: OMEPRAZOLE
     Indication: PROPHYLAXIS
     Dosage: LAST DOSE 11/NOV/2015
     Route: 048
     Dates: start: 20150815
  16. ONDANSETRON [Concomitant]
     Active Substance: ONDANSETRON
     Indication: PROPHYLAXIS
     Dosage: LAST DOSE PRIOR TO SAE ON 05/NOV/2015
     Route: 048
     Dates: start: 20150820

REACTIONS (2)
  - Lung infection [Recovered/Resolved]
  - Thrombocytopenia [Unknown]

NARRATIVE: CASE EVENT DATE: 20151112
